FAERS Safety Report 7594079-6 (Version None)
Quarter: 2011Q3

REPORT INFORMATION
  Report Type: 
  Country: None (occurrence: None)
  Receive Date: 20110706
  Receipt Date: 20110630
  Transmission Date: 20111222
  Serious: Yes (Other)
  Sender: FDA-Public Use
  Company Number: US-PFIZER INC-2011147030

PATIENT
  Sex: Male
  Weight: 123.81 kg

DRUGS (2)
  1. TYLENOL-500 [Concomitant]
     Indication: HEADACHE
  2. VIAGRA [Suspect]
     Indication: ERECTILE DYSFUNCTION
     Dosage: 25 MG, AS NEEDED
     Route: 048
     Dates: start: 20110615

REACTIONS (3)
  - ERECTION INCREASED [None]
  - PENILE SWELLING [None]
  - PENILE PAIN [None]
